FAERS Safety Report 15779695 (Version 1)
Quarter: 2019Q1

REPORT INFORMATION
  Report Type: Report from Study
  Country: None (occurrence: ES)
  Receive Date: 20190101
  Receipt Date: 20190101
  Transmission Date: 20190417
  Serious: Yes (Hospitalization)
  Sender: FDA-Public Use
  Company Number: ES-ABBVIE-18S-144-2604259-00

PATIENT
  Age: 70 Year
  Sex: Male
  Weight: 59 kg

DRUGS (1)
  1. DUODOPA [Suspect]
     Active Substance: CARBIDOPA\LEVODOPA
     Indication: PARKINSON^S DISEASE
     Route: 050
     Dates: start: 20180920, end: 20181225

REACTIONS (4)
  - Fatigue [Unknown]
  - Gastrointestinal haemorrhage [Recovering/Resolving]
  - Anaemia [Recovering/Resolving]
  - Faeces discoloured [Unknown]

NARRATIVE: CASE EVENT DATE: 201812
